FAERS Safety Report 7734502 (Version 3)
Quarter: 2012Q4

REPORT INFORMATION
  Report Type: 
  Country: JP (occurrence: JP)
  Receive Date: 20101223
  Receipt Date: 20120904
  Transmission Date: 20130627
  Serious: Yes (Death, Life-Threatening, Other)
  Sender: FDA-Public Use
  Company Number: JP-ROCHE-749138

PATIENT
  Age: 77 Year
  Sex: Male
  Weight: 64 kg

DRUGS (14)
  1. AVASTIN [Suspect]
     Indication: COLON CANCER METASTATIC
     Route: 041
     Dates: start: 20101025, end: 20110113
  2. TOPOTECIN [Suspect]
     Indication: COLON CANCER METASTATIC
     Route: 041
     Dates: start: 20101025, end: 20101025
  3. TOPOTECIN [Suspect]
     Route: 041
     Dates: start: 20101115, end: 20101115
  4. UNSPECIFIED INGREDIENT [Suspect]
     Indication: COLON CANCER METASTATIC
     Route: 058
     Dates: start: 20101126, end: 20101128
  5. 5-FU [Concomitant]
     Dosage: FORM: INTRAVENOUS BOLUS.
     Route: 042
     Dates: start: 20101025, end: 20101025
  6. LEVOFOLINATE [Concomitant]
     Route: 041
     Dates: start: 20101025, end: 20101025
  7. LEVOFOLINATE [Concomitant]
     Dosage: FORM: INTRAVENOUS DRIP
     Route: 041
     Dates: start: 20101115, end: 20101115
  8. LEVOFOLINATE [Concomitant]
     Dosage: FORM: INTRAVENOUS DRIP
     Route: 041
     Dates: start: 20110113, end: 20110113
  9. GRANISETRON [Concomitant]
     Route: 041
  10. DEXART [Concomitant]
     Route: 041
  11. FAMOSTAGINE [Concomitant]
     Route: 041
     Dates: start: 20101028, end: 20101030
  12. MEROPENEM [Concomitant]
     Route: 041
     Dates: start: 20101201, end: 20101206
  13. MINOCYCLINE [Concomitant]
     Route: 041
     Dates: start: 20101207, end: 20101213
  14. FUNGUARD [Concomitant]
     Route: 041
     Dates: start: 20101211, end: 20101213

REACTIONS (6)
  - Device related infection [Fatal]
  - Interstitial lung disease [Recovered/Resolved]
  - Febrile neutropenia [Unknown]
  - Staphylococcal infection [Unknown]
  - Depressed level of consciousness [Unknown]
  - Hyperglycaemia [Unknown]
